FAERS Safety Report 8004674-8 (Version None)
Quarter: 2011Q4

REPORT INFORMATION
  Report Type: 
  Country: None (occurrence: None)
  Receive Date: 20111223
  Receipt Date: 20111215
  Transmission Date: 20120403
  Serious: Yes (Life-Threatening, Hospitalization)
  Sender: FDA-Public Use
  Company Number: US-JNJFOC-20110402078

PATIENT
  Sex: Male
  Weight: 114.4 kg

DRUGS (1)
  1. INFLIXIMAB, RECOMBINANT [Suspect]
     Indication: PSORIASIS
     Route: 042
     Dates: start: 20070101, end: 20110127

REACTIONS (2)
  - ANASTOMOTIC LEAK [None]
  - OESOPHAGEAL ADENOCARCINOMA [None]
